FAERS Safety Report 7070020-X (Version None)
Quarter: 2010Q4

REPORT INFORMATION
  Report Type: 
  Country: None (occurrence: None)
  Receive Date: 20101028
  Receipt Date: 20100817
  Transmission Date: 20110411
  Serious: Yes (Other)
  Sender: FDA-Public Use
  Company Number: US-WYE-H16999810

PATIENT
  Age: 65 Year
  Sex: Male

DRUGS (1)
  1. AMIODARONE [Suspect]
     Dosage: DOSE AND FREQUENCY NOT SPECIFIED
     Route: 065

REACTIONS (1)
  - PNEUMONITIS [None]
